FAERS Safety Report 5248103-6 (Version None)
Quarter: 2007Q1

REPORT INFORMATION
  Report Type: 
  Country: None (occurrence: None)
  Receive Date: 20070227
  Receipt Date: 20070226
  Transmission Date: 20070707
  Serious: Yes (Other)
  Sender: FDA-Public Use
  Company Number: GB-GLAXOSMITHKLINE-B0444925A

PATIENT
  Age: 36 Year
  Sex: Female

DRUGS (1)
  1. CEFUROXIME SODIUM [Suspect]
     Indication: ANTIBIOTIC PROPHYLAXIS
     Dosage: 1.5G SINGLE DOSE
     Route: 042
     Dates: start: 20060929, end: 20060929

REACTIONS (2)
  - DYSPNOEA [None]
  - PRURITUS [None]
